FAERS Safety Report 10050299 (Version 1)
Quarter: 2014Q2

REPORT INFORMATION
  Report Type: Spontaneous
  Country: US (occurrence: US)
  Receive Date: 20140401
  Receipt Date: 20140401
  Transmission Date: 20141212
  Serious: Yes (Other)
  Sender: FDA-Public Use
  Company Number: PHHY2014US036005

PATIENT
  Age: 44 Year
  Sex: Female

DRUGS (2)
  1. AMITRIPTYLINE [Suspect]
  2. METHADONE [Concomitant]
     Dosage: UNK

REACTIONS (1)
  - Drug abuse [Unknown]
